FAERS Safety Report 23600853 (Version 2)
Quarter: 2024Q1

REPORT INFORMATION
  Report Type: Report from Study
  Country: JP (occurrence: JP)
  Receive Date: 20240306
  Receipt Date: 20240327
  Transmission Date: 20240409
  Serious: Yes (Hospitalization)
  Sender: FDA-Public Use
  Company Number: JP-JNJFOC-20231269401

PATIENT
  Age: 91 Year
  Sex: Male

DRUGS (10)
  1. ERLEADA [Suspect]
     Active Substance: APALUTAMIDE
     Indication: Prostate cancer
     Route: 048
     Dates: start: 20231128, end: 20240123
  2. ERLEADA [Suspect]
     Active Substance: APALUTAMIDE
     Indication: Prostate cancer
     Route: 048
     Dates: start: 20240124
  3. LEUPLIN [Concomitant]
     Active Substance: LEUPROLIDE ACETATE
     Indication: Prostate cancer
     Dosage: DOSE UNKNOWN
     Route: 058
     Dates: start: 201106
  4. AMLODIPINE BESYLATE [Concomitant]
     Active Substance: AMLODIPINE BESYLATE
     Route: 048
  5. ALFACALCIDOL [Concomitant]
     Active Substance: ALFACALCIDOL
     Dosage: DOSE UNKNOWN
     Route: 048
  6. ROSUVASTATIN CALCIUM [Concomitant]
     Active Substance: ROSUVASTATIN CALCIUM
     Dosage: DOSE UNKNOWN
     Route: 048
  7. JANUVIA [Concomitant]
     Active Substance: SITAGLIPTIN PHOSPHATE
     Dosage: DOSE UNKNOWN
     Route: 048
  8. NAFTOPIDIL [Concomitant]
     Active Substance: NAFTOPIDIL
     Dosage: DOSE UNKNOWN
     Route: 048
  9. HEPARINOID [Concomitant]
     Indication: Pruritus
     Dosage: DOSE UNKNOWN
     Route: 061
  10. EURAX [Concomitant]
     Active Substance: CROTAMITON
     Indication: Pruritus
     Dosage: DOSE UNKNOWN
     Route: 061

REACTIONS (9)
  - Compression fracture [Not Recovered/Not Resolved]
  - Bedridden [Recovering/Resolving]
  - General physical health deterioration [Not Recovered/Not Resolved]
  - Dizziness [Not Recovered/Not Resolved]
  - Prostatic specific antigen increased [Not Recovered/Not Resolved]
  - Eczema [Recovered/Resolved]
  - Dry skin [Not Recovered/Not Resolved]
  - Skin exfoliation [Not Recovered/Not Resolved]
  - Pruritus [Not Recovered/Not Resolved]

NARRATIVE: CASE EVENT DATE: 20230101
